FAERS Safety Report 7750276-8 (Version None)
Quarter: 2011Q3

REPORT INFORMATION
  Report Type: 
  Country: None (occurrence: None)
  Receive Date: 20110914
  Receipt Date: 20110901
  Transmission Date: 20111222
  Serious: Yes (Other)
  Sender: FDA-Public Use
  Company Number: US-WATSON-2011-14073

PATIENT
  Sex: Female

DRUGS (2)
  1. TAMOXIFEN CITRATE [Suspect]
     Indication: BREAST CANCER
     Dosage: UNK
     Route: 048
     Dates: start: 20080825, end: 20110825
  2. TRELSTAR [Suspect]
     Indication: BREAST CANCER
     Dosage: 3.75MG, UNK
     Route: 030
     Dates: start: 20080829, end: 20110105

REACTIONS (1)
  - FRACTURE [None]
